FAERS Safety Report 19272800 (Version 2)
Quarter: 2021Q2

REPORT INFORMATION
  Report Type: Spontaneous
  Country: CA (occurrence: CA)
  Receive Date: 20210518
  Receipt Date: 20210621
  Transmission Date: 20210717
  Serious: Yes (Death)
  Sender: FDA-Public Use
  Company Number: CA-PFIZER INC-2020431398

PATIENT
  Age: 76 Year
  Sex: Male

DRUGS (17)
  1. ARANESP [Concomitant]
     Active Substance: DARBEPOETIN ALFA
     Route: 058
  2. CAVIT D [CALCIUM CARBONATE;COLECALCIFEROL] [Concomitant]
     Dosage: 1 DF
     Route: 065
  3. PREDNISONE. [Concomitant]
     Active Substance: PREDNISONE
     Dosage: 35 MG, 1X/DAY TAPER EVERY 2 WEEKS, 30?25?20?15?10?7.5?5MG OD
  4. XALATAN [Concomitant]
     Active Substance: LATANOPROST
     Dosage: 1 DF (OPHTHALMIC)
     Route: 047
  5. FUROSEMIDE. [Concomitant]
     Active Substance: FUROSEMIDE
     Dosage: 20 MG, DAILY (QAM)
     Route: 048
  6. ROSUVASTATIN. [Concomitant]
     Active Substance: ROSUVASTATIN
     Dosage: 10 MG, 1X/DAY (TAB, PO, QPM )
     Route: 048
  7. RUXIENCE [Suspect]
     Active Substance: RITUXIMAB-PVVR
     Indication: GRANULOMATOSIS WITH POLYANGIITIS
     Dosage: 1G X 2 (INDUCTION) 1G DAY 1 AND 1G DAY 15
     Route: 042
     Dates: start: 20201111, end: 20201111
  8. ASA [Concomitant]
     Active Substance: ASPIRIN
     Dosage: 81 MG, 1X/DAY (QHS)
     Route: 048
  9. ASA [Concomitant]
     Active Substance: ASPIRIN
     Dosage: 81 MG
     Route: 048
  10. ATROVENT [Concomitant]
     Active Substance: IPRATROPIUM BROMIDE
     Dosage: 20 UG
  11. AZOPT [Concomitant]
     Active Substance: BRINZOLAMIDE
     Dosage: 1 DF [BRINZOLAMIDE OPHTHALMIC (AZOPT 1% OPH SUSP)]
     Route: 047
  12. PANTOPRAZOLE [Concomitant]
     Active Substance: PANTOPRAZOLE
     Dosage: 40 MG, DAILY (DAILY AC )
     Route: 048
  13. SEPTRA DS [Concomitant]
     Active Substance: SULFAMETHOXAZOLE\TRIMETHOPRIM
     Dosage: 1 DF, 1X/DAY (DAILY (3/WEEK)
  14. RUXIENCE [Suspect]
     Active Substance: RITUXIMAB-PVVR
     Indication: MICROSCOPIC POLYANGIITIS
     Dosage: 1 G (DAY 15)
     Route: 042
     Dates: start: 20201126, end: 20201126
  15. ARANESP [Concomitant]
     Active Substance: DARBEPOETIN ALFA
     Dosage: 20 UG, WEEKLY WEEKLY (EVERY WEDNESDAY ARANESP 20 MCG)
     Route: 058
  16. BRIMONIDINE [Concomitant]
     Active Substance: BRIMONIDINE TARTRATE
     Dosage: 1 DF (BRIMONIDINE 0.15% OPH SOLN)
     Route: 047
  17. ATROVENT [Concomitant]
     Active Substance: IPRATROPIUM BROMIDE
     Dosage: 20 UG (IPRATROPIUM 20 MCG/DOSE INHALER)

REACTIONS (6)
  - Atelectasis [Unknown]
  - Oedema peripheral [Unknown]
  - Death [Fatal]
  - Off label use [Unknown]
  - Dyspnoea exertional [Unknown]
  - Weight increased [Unknown]

NARRATIVE: CASE EVENT DATE: 20210406
